FAERS Safety Report 23591141 (Version 1)
Quarter: 2024Q1

REPORT INFORMATION
  Report Type: Spontaneous
  Country: IT (occurrence: IT)
  Receive Date: 20240304
  Receipt Date: 20240304
  Transmission Date: 20240410
  Serious: Yes (Death, Other)
  Sender: FDA-Public Use
  Company Number: IT-DSJP-DSE-2024-109788

PATIENT
  Sex: Male
  Weight: 78 kg

DRUGS (2)
  1. TRASTUZUMAB DERUXTECAN [Suspect]
     Active Substance: TRASTUZUMAB DERUXTECAN
     Indication: Gastric cancer
     Dosage: 5.4 MG/KG
     Route: 065
  2. GROWTH FACTORS (UNSPECIFIED) [Concomitant]
     Indication: Product used for unknown indication
     Dosage: UNK
     Route: 065

REACTIONS (2)
  - Neutropenia [Fatal]
  - Platelet count decreased [Fatal]
